FAERS Safety Report 21581965 (Version 1)
Quarter: 2022Q4

REPORT INFORMATION
  Report Type: Spontaneous
  Country: US (occurrence: US)
  Receive Date: 20221111
  Receipt Date: 20221111
  Transmission Date: 20230113
  Serious: No
  Sender: FDA-Public Use
  Company Number: US-TAKEDA-2022TUS082619

PATIENT
  Age: 14 Year
  Sex: Female

DRUGS (1)
  1. CUVITRU [Suspect]
     Active Substance: HUMAN IMMUNOGLOBULIN G
     Indication: Primary immunodeficiency syndrome
     Dosage: 3 MILLILITER, 1/WEEK
     Route: 058
     Dates: start: 20220801

REACTIONS (5)
  - Rhinorrhoea [Recovered/Resolved]
  - Infusion site mass [Recovered/Resolved]
  - Infusion site pain [Recovered/Resolved]
  - Infusion site extravasation [Recovered/Resolved]
  - Fatigue [Recovered/Resolved]

NARRATIVE: CASE EVENT DATE: 20220801
